FAERS Safety Report 7967392-8 (Version None)
Quarter: 2011Q4

REPORT INFORMATION
  Report Type: 
  Country: None (occurrence: None)
  Receive Date: 20111209
  Receipt Date: 20111201
  Transmission Date: 20120403
  Serious: Yes (Disabling)
  Sender: FDA-Public Use
  Company Number: FR-JNJFOC-20111111665

PATIENT
  Age: 33 Year
  Sex: Male

DRUGS (2)
  1. KETEK [Concomitant]
     Indication: LUNG DISORDER
     Route: 065
     Dates: start: 20110508, end: 20110511
  2. LEVOFLOXACIN [Suspect]
     Indication: LUNG INFECTION
     Route: 048
     Dates: start: 20110512, end: 20110523

REACTIONS (3)
  - MUSCULAR WEAKNESS [None]
  - DISABILITY [None]
  - FATIGUE [None]
